FAERS Safety Report 5781742-2 (Version None)
Quarter: 2008Q2

REPORT INFORMATION
  Report Type: 
  Country: None (occurrence: None)
  Receive Date: 20080623
  Receipt Date: 20071026
  Transmission Date: 20081010
  Serious: No
  Sender: FDA-Public Use
  Company Number: US-ASTRAZENECA-2007UW24919

PATIENT
  Age: 7 Year

DRUGS (1)
  1. RHINOCORT [Suspect]
     Route: 045

REACTIONS (2)
  - INSOMNIA [None]
  - IRRITABILITY [None]
